FAERS Safety Report 6715881-6 (Version None)
Quarter: 2010Q2

REPORT INFORMATION
  Report Type: 
  Country: None (occurrence: None)
  Receive Date: 20100507
  Receipt Date: 20100426
  Transmission Date: 20101027
  Serious: Yes (Hospitalization)
  Sender: FDA-Public Use
  Company Number: PHHY2010JP26707

PATIENT
  Sex: Male
  Weight: 55 kg

DRUGS (7)
  1. DIOVAN [Suspect]
     Dosage: 80 MG, QD
     Route: 048
     Dates: start: 20071126, end: 20090618
  2. WARFARIN [Concomitant]
     Dosage: 2.0 MG, UNK
     Route: 048
     Dates: start: 20071126
  3. WARFARIN [Concomitant]
     Dosage: 2.5 MG, UNK
     Route: 048
  4. WARFARIN [Concomitant]
     Dosage: 2.75 MG, UNK
     Route: 048
  5. WARFARIN [Concomitant]
     Dosage: 3.0 MG, UNK
     Route: 048
  6. WARFARIN [Concomitant]
     Dosage: 3.25 MG, UNK
     Route: 048
  7. WARFARIN [Concomitant]
     Dosage: 3.0 MG, UNK
     Route: 048
     Dates: end: 20081015

REACTIONS (1)
  - CEREBRAL INFARCTION [None]
